FAERS Safety Report 19014398 (Version 15)
Quarter: 2024Q4

REPORT INFORMATION
  Report Type: Spontaneous
  Country: CA (occurrence: CA)
  Receive Date: 20210316
  Receipt Date: 20241028
  Transmission Date: 20250114
  Serious: Yes (Other)
  Sender: Haleon PLC
  Company Number: CA-ALLERGAN-2110989US

PATIENT
  Age: 43 Year
  Sex: Female

DRUGS (170)
  1. ACETAMINOPHEN [Suspect]
     Active Substance: ACETAMINOPHEN
     Indication: Product used for unknown indication
  2. RANITIDINE HYDROCHLORIDE [Suspect]
     Active Substance: RANITIDINE HYDROCHLORIDE
     Indication: Product used for unknown indication
  3. RANITIDINE HYDROCHLORIDE [Suspect]
     Active Substance: RANITIDINE HYDROCHLORIDE
  4. MYRBETRIQ [Suspect]
     Active Substance: MIRABEGRON
     Indication: Migraine
     Route: 048
  5. MYRBETRIQ [Suspect]
     Active Substance: MIRABEGRON
     Route: 048
  6. CANDESARTAN [Suspect]
     Active Substance: CANDESARTAN
     Indication: Migraine
     Route: 048
  7. MAGNESIUM CARBONATE [Suspect]
     Active Substance: MAGNESIUM CARBONATE
     Indication: Product used for unknown indication
     Dosage: UNK
  8. HYDROCORTISONE ACETATE [Suspect]
     Active Substance: HYDROCORTISONE ACETATE
     Indication: Product used for unknown indication
     Dosage: 25 MG, QD
  9. HYDROCORTISONE ACETATE [Suspect]
     Active Substance: HYDROCORTISONE ACETATE
     Dosage: 4.0 MONTHS
  10. HYDROCORTISONE ACETATE [Suspect]
     Active Substance: HYDROCORTISONE ACETATE
     Dosage: 4.0 MONTHS
  11. HYDROCORTISONE ACETATE [Suspect]
     Active Substance: HYDROCORTISONE ACETATE
     Dosage: 25 MG, QD
  12. CETIRIZINE [Suspect]
     Active Substance: CETIRIZINE HYDROCHLORIDE
     Indication: Product used for unknown indication
     Route: 048
  13. CETIRIZINE [Suspect]
     Active Substance: CETIRIZINE HYDROCHLORIDE
  14. CETIRIZINE [Suspect]
     Active Substance: CETIRIZINE HYDROCHLORIDE
  15. CETIRIZINE [Suspect]
     Active Substance: CETIRIZINE HYDROCHLORIDE
     Route: 048
  16. CALCIUM CARBONATE [Suspect]
     Active Substance: CALCIUM CARBONATE
     Indication: Product used for unknown indication
  17. CALCIUM CARBONATE [Suspect]
     Active Substance: CALCIUM CARBONATE
  18. CETIRIZINE HYDROCHLORIDE [Suspect]
     Active Substance: CETIRIZINE HYDROCHLORIDE
     Indication: Product used for unknown indication
     Dosage: 421.0 DAYS
  19. CETIRIZINE HYDROCHLORIDE [Suspect]
     Active Substance: CETIRIZINE HYDROCHLORIDE
     Dosage: 421.0 DAYS
  20. DESOXIMETASONE [Suspect]
     Active Substance: DESOXIMETASONE
     Indication: Product used for unknown indication
     Dosage: 122.0 DAYS
  21. DESOXIMETASONE [Suspect]
     Active Substance: DESOXIMETASONE
     Dosage: 122.0 DAYS
  22. DESOXIMETASONE [Suspect]
     Active Substance: DESOXIMETASONE
     Dosage: 4.0 MONTHS
  23. DESOXIMETASONE [Suspect]
     Active Substance: DESOXIMETASONE
     Dosage: 4.0 MONTHS
  24. DESOXIMETASONE [Suspect]
     Active Substance: DESOXIMETASONE
  25. DESOXIMETASONE [Suspect]
     Active Substance: DESOXIMETASONE
  26. DESOXIMETASONE [Suspect]
     Active Substance: DESOXIMETASONE
     Dosage: 122.0 DAY
  27. BETAMETHASONE [Suspect]
     Active Substance: BETAMETHASONE
     Indication: Product used for unknown indication
     Dosage: 1 DF, QD
  28. BETAMETHASONE [Suspect]
     Active Substance: BETAMETHASONE
  29. BETAMETHASONE [Suspect]
     Active Substance: BETAMETHASONE
     Dosage: 1 DF, QD
  30. BETAMETHASONE [Suspect]
     Active Substance: BETAMETHASONE
     Dosage: 361.0 DAYS
  31. BETAMETHASONE [Suspect]
     Active Substance: BETAMETHASONE
  32. BETAMETHASONE [Suspect]
     Active Substance: BETAMETHASONE
  33. NAPROXEN [Suspect]
     Active Substance: NAPROXEN
     Indication: Product used for unknown indication
  34. NAPROXEN [Suspect]
     Active Substance: NAPROXEN
     Dosage: 1 DF, BID
     Route: 005
  35. NAPROXEN [Suspect]
     Active Substance: NAPROXEN
  36. NAPROXEN [Suspect]
     Active Substance: NAPROXEN
  37. NAPROXEN [Suspect]
     Active Substance: NAPROXEN
     Route: 005
  38. NAPROXEN [Suspect]
     Active Substance: NAPROXEN
  39. NAPROXEN [Suspect]
     Active Substance: NAPROXEN
     Dosage: 3.0 MONTHS
  40. NAPROXEN [Suspect]
     Active Substance: NAPROXEN
     Route: 005
  41. NAPROXEN [Suspect]
     Active Substance: NAPROXEN
     Route: 005
  42. TRETINOIN [Suspect]
     Active Substance: TRETINOIN
     Indication: Product used for unknown indication
  43. BUPRENORPHINE HYDROCHLORIDE [Suspect]
     Active Substance: BUPRENORPHINE HYDROCHLORIDE
     Indication: Product used for unknown indication
  44. FLUTICASONE FUROATE [Suspect]
     Active Substance: FLUTICASONE FUROATE
     Indication: Product used for unknown indication
     Dosage: 421.0 DAYS, (SPRAY METERED DOSE)
  45. FLUTICASONE FUROATE [Suspect]
     Active Substance: FLUTICASONE FUROATE
     Dosage: (SPRAY METERED DOSE)
  46. FINACEA [Suspect]
     Active Substance: AZELAIC ACID
     Indication: Product used for unknown indication
  47. FINACEA [Suspect]
     Active Substance: AZELAIC ACID
     Route: 048
  48. LAMOTRIGINE [Suspect]
     Active Substance: LAMOTRIGINE
     Indication: Product used for unknown indication
     Route: 048
  49. LAMOTRIGINE [Suspect]
     Active Substance: LAMOTRIGINE
     Route: 048
  50. LAMOTRIGINE [Suspect]
     Active Substance: LAMOTRIGINE
     Route: 048
  51. TOPICORT [Suspect]
     Active Substance: DESOXIMETASONE
     Indication: Product used for unknown indication
  52. TOPICORT [Suspect]
     Active Substance: DESOXIMETASONE
  53. TOPICORT [Suspect]
     Active Substance: DESOXIMETASONE
  54. TOPICORT [Suspect]
     Active Substance: DESOXIMETASONE
  55. TOPICORT [Suspect]
     Active Substance: DESOXIMETASONE
  56. TOPAMAX [Suspect]
     Active Substance: TOPIRAMATE
     Indication: Product used for unknown indication
  57. TOPAMAX [Suspect]
     Active Substance: TOPIRAMATE
  58. TOPAMAX [Suspect]
     Active Substance: TOPIRAMATE
  59. TOPIRAMATE [Suspect]
     Active Substance: TOPIRAMATE
     Indication: Migraine
  60. TOPIRAMATE [Suspect]
     Active Substance: TOPIRAMATE
     Dosage: 26.0 DAYS
  61. TOPIRAMATE [Suspect]
     Active Substance: TOPIRAMATE
  62. TOPIRAMATE [Suspect]
     Active Substance: TOPIRAMATE
  63. TOPIRAMATE [Suspect]
     Active Substance: TOPIRAMATE
  64. TOPIRAMATE [Suspect]
     Active Substance: TOPIRAMATE
  65. TOPIRAMATE [Suspect]
     Active Substance: TOPIRAMATE
  66. TOPIRAMATE [Suspect]
     Active Substance: TOPIRAMATE
  67. TRAZODONE [Suspect]
     Active Substance: TRAZODONE HYDROCHLORIDE
     Indication: Product used for unknown indication
     Dosage: 121.0 DAYS
  68. TRAZODONE [Suspect]
     Active Substance: TRAZODONE HYDROCHLORIDE
  69. TRAZODONE [Suspect]
     Active Substance: TRAZODONE HYDROCHLORIDE
     Dosage: 121.0 DAYS
  70. TRAZODONE [Suspect]
     Active Substance: TRAZODONE HYDROCHLORIDE
  71. LAMICTAL [Suspect]
     Active Substance: LAMOTRIGINE
     Indication: Product used for unknown indication
  72. LAMICTAL [Suspect]
     Active Substance: LAMOTRIGINE
     Dosage: 26.0 DAYS
     Route: 048
  73. LAMICTAL [Suspect]
     Active Substance: LAMOTRIGINE
     Route: 048
  74. LAMICTAL [Suspect]
     Active Substance: LAMOTRIGINE
     Route: 048
  75. LAMICTAL [Suspect]
     Active Substance: LAMOTRIGINE
  76. FLUTICASONE FUROATE [Suspect]
     Active Substance: FLUTICASONE FUROATE
     Indication: Product used for unknown indication
  77. FLUTICASONE FUROATE [Suspect]
     Active Substance: FLUTICASONE FUROATE
  78. BUTRANS [Suspect]
     Active Substance: BUPRENORPHINE
     Indication: Product used for unknown indication
  79. BUTRANS [Suspect]
     Active Substance: BUPRENORPHINE
     Dosage: 91.0 DAYS
  80. DOMPERIDONE MALEATE [Suspect]
     Active Substance: DOMPERIDONE MALEATE
     Indication: Product used for unknown indication
     Dosage: 122.0 DAY
  81. DOMPERIDONE MALEATE [Suspect]
     Active Substance: DOMPERIDONE MALEATE
     Dosage: 122.0 DAY
  82. DOMPERIDONE MALEATE [Suspect]
     Active Substance: DOMPERIDONE MALEATE
  83. DOMPERIDONE MALEATE [Suspect]
     Active Substance: DOMPERIDONE MALEATE
  84. DOMPERIDONE MALEATE [Suspect]
     Active Substance: DOMPERIDONE MALEATE
  85. DOMPERIDONE MALEATE [Suspect]
     Active Substance: DOMPERIDONE MALEATE
  86. DOMPERIDONE MALEATE [Suspect]
     Active Substance: DOMPERIDONE MALEATE
  87. DOMPERIDONE MALEATE [Suspect]
     Active Substance: DOMPERIDONE MALEATE
     Dosage: 122.0 DAY
  88. ATOMOXETINE HYDROCHLORIDE [Suspect]
     Active Substance: ATOMOXETINE HYDROCHLORIDE
     Indication: Migraine
     Dosage: 1 DF, QD
  89. ATOMOXETINE HYDROCHLORIDE [Suspect]
     Active Substance: ATOMOXETINE HYDROCHLORIDE
     Dosage: 422.0 DAYS
  90. ATOMOXETINE HYDROCHLORIDE [Suspect]
     Active Substance: ATOMOXETINE HYDROCHLORIDE
  91. ATOMOXETINE HYDROCHLORIDE [Suspect]
     Active Substance: ATOMOXETINE HYDROCHLORIDE
  92. ATOMOXETINE HYDROCHLORIDE [Suspect]
     Active Substance: ATOMOXETINE HYDROCHLORIDE
  93. ATOMOXETINE HYDROCHLORIDE [Suspect]
     Active Substance: ATOMOXETINE HYDROCHLORIDE
     Dosage: 422.0 DAYS
     Route: 005
  94. ATOMOXETINE HYDROCHLORIDE [Suspect]
     Active Substance: ATOMOXETINE HYDROCHLORIDE
     Route: 005
  95. ATOMOXETINE HYDROCHLORIDE [Suspect]
     Active Substance: ATOMOXETINE HYDROCHLORIDE
     Dosage: 422.0 DAYS
  96. CYCLOBENZAPRINE [Suspect]
     Active Substance: CYCLOBENZAPRINE
     Indication: Product used for unknown indication
  97. CYCLOBENZAPRINE [Suspect]
     Active Substance: CYCLOBENZAPRINE
  98. CYCLOBENZAPRINE [Suspect]
     Active Substance: CYCLOBENZAPRINE
     Dosage: 421.0 DAYS
  99. CYCLOBENZAPRINE [Suspect]
     Active Substance: CYCLOBENZAPRINE
     Dosage: 421.0 DAYS
  100. AZELAIC ACID [Suspect]
     Active Substance: AZELAIC ACID
     Indication: Product used for unknown indication
  101. AZELAIC ACID [Suspect]
     Active Substance: AZELAIC ACID
  102. AZELAIC ACID [Suspect]
     Active Substance: AZELAIC ACID
     Route: 005
  103. ERENUMAB [Suspect]
     Active Substance: ERENUMAB
     Indication: Migraine
  104. ERENUMAB [Suspect]
     Active Substance: ERENUMAB
  105. ERENUMAB [Suspect]
     Active Substance: ERENUMAB
  106. ERENUMAB [Suspect]
     Active Substance: ERENUMAB
  107. FETZIMA [Suspect]
     Active Substance: LEVOMILNACIPRAN HYDROCHLORIDE
     Indication: Product used for unknown indication
  108. FETZIMA [Suspect]
     Active Substance: LEVOMILNACIPRAN HYDROCHLORIDE
     Dosage: 391.0 DAYS
  109. HYDROMORPHONE [Suspect]
     Active Substance: HYDROMORPHONE
     Indication: Product used for unknown indication
  110. HYDROMORPHONE [Suspect]
     Active Substance: HYDROMORPHONE
  111. HYDROMORPHONE [Suspect]
     Active Substance: HYDROMORPHONE
  112. HYDROMORPHONE [Suspect]
     Active Substance: HYDROMORPHONE
  113. PHOSPHORUS [Suspect]
     Active Substance: PHOSPHORUS
     Indication: Product used for unknown indication
  114. PANTOPRAZOLE [Suspect]
     Active Substance: PANTOPRAZOLE
     Indication: Product used for unknown indication
     Dosage: 421.0 DAY
  115. PANTOPRAZOLE [Suspect]
     Active Substance: PANTOPRAZOLE
     Route: 048
  116. PANTOPRAZOLE [Suspect]
     Active Substance: PANTOPRAZOLE
  117. PANTOPRAZOLE [Suspect]
     Active Substance: PANTOPRAZOLE
  118. PANTOPRAZOLE [Suspect]
     Active Substance: PANTOPRAZOLE
  119. PANTOPRAZOLE [Suspect]
     Active Substance: PANTOPRAZOLE
  120. PANTOPRAZOLE [Suspect]
     Active Substance: PANTOPRAZOLE
  121. PANTOPRAZOLE [Suspect]
     Active Substance: PANTOPRAZOLE
  122. PANTOPRAZOLE [Suspect]
     Active Substance: PANTOPRAZOLE
  123. AIMOVIG [Suspect]
     Active Substance: ERENUMAB-AOOE
     Indication: Migraine
  124. AIMOVIG [Suspect]
     Active Substance: ERENUMAB-AOOE
  125. BOTOX [Suspect]
     Active Substance: ONABOTULINUMTOXINA
     Indication: Migraine
     Dosage: POWDER FOR SOLUTION INTRAMUSCULAR
  126. BOTOX [Suspect]
     Active Substance: ONABOTULINUMTOXINA
  127. VITAMIN D3 [Suspect]
     Active Substance: CHOLECALCIFEROL
     Indication: Product used for unknown indication
  128. VITAMIN D3 [Suspect]
     Active Substance: CHOLECALCIFEROL
  129. VITAMIN D3 [Suspect]
     Active Substance: CHOLECALCIFEROL
  130. VITAMIN D3 [Suspect]
     Active Substance: CHOLECALCIFEROL
     Dosage: 91.0 DAYS
  131. CALCIUM [Suspect]
     Active Substance: CALCIUM
     Indication: Product used for unknown indication
  132. CORTISONE [Suspect]
     Active Substance: CORTISONE
     Indication: Product used for unknown indication
  133. CORTISONE [Suspect]
     Active Substance: CORTISONE
  134. CORTISONE [Suspect]
     Active Substance: CORTISONE
     Dosage: 4.0 MONTHS
  135. CORTISONE [Suspect]
     Active Substance: CORTISONE
     Dosage: 4.0 MONTHS
  136. CYANOCOBALAMIN [Suspect]
     Active Substance: CYANOCOBALAMIN
     Indication: Product used for unknown indication
  137. CYANOCOBALAMIN [Suspect]
     Active Substance: CYANOCOBALAMIN
     Route: 048
  138. CYANOCOBALAMIN [Suspect]
     Active Substance: CYANOCOBALAMIN
     Dosage: 421.0 DAYS
  139. CYANOCOBALAMIN [Suspect]
     Active Substance: CYANOCOBALAMIN
  140. CYANOCOBALAMIN [Suspect]
     Active Substance: CYANOCOBALAMIN
  141. CYANOCOBALAMIN [Suspect]
     Active Substance: CYANOCOBALAMIN
     Dosage: 421.0 DAYS
  142. CALCIUM PANTOTHENATE [Suspect]
     Active Substance: CALCIUM PANTOTHENATE
     Indication: Product used for unknown indication
  143. CALCIUM PANTOTHENATE [Suspect]
     Active Substance: CALCIUM PANTOTHENATE
  144. TRICHOLINE CITRATE [Suspect]
     Active Substance: TRICHOLINE CITRATE
     Indication: Product used for unknown indication
  145. VITAMIN D [Suspect]
     Active Substance: VITAMIN D NOS
     Indication: Product used for unknown indication
  146. VITAMIN D [Suspect]
     Active Substance: VITAMIN D NOS
  147. VITAMIN C [Suspect]
     Active Substance: ASCORBIC ACID
     Indication: Product used for unknown indication
  148. VITAMIN A [Suspect]
     Active Substance: VITAMIN A
     Indication: Product used for unknown indication
  149. TRIAMCINOLONE ACETONIDE [Suspect]
     Active Substance: TRIAMCINOLONE ACETONIDE
     Indication: Product used for unknown indication
     Dosage: SUSPENSION INTRA- ARTICULAR
  150. THIAMINE HYDROCHLORIDE [Suspect]
     Active Substance: THIAMINE HYDROCHLORIDE
     Indication: Product used for unknown indication
  151. THIAMINE HYDROCHLORIDE [Suspect]
     Active Substance: THIAMINE HYDROCHLORIDE
  152. STRATTERA [Suspect]
     Active Substance: ATOMOXETINE HYDROCHLORIDE
     Indication: Migraine
  153. RIBOFLAVIN [Suspect]
     Active Substance: RIBOFLAVIN
     Indication: Product used for unknown indication
  154. CETIRIZINE HYDROCHLORIDE\PSEUDOEPHEDRINE HYDROCHLORIDE [Suspect]
     Active Substance: CETIRIZINE HYDROCHLORIDE\PSEUDOEPHEDRINE HYDROCHLORIDE
     Indication: Product used for unknown indication
     Route: 048
  155. CETIRIZINE HYDROCHLORIDE\PSEUDOEPHEDRINE HYDROCHLORIDE [Suspect]
     Active Substance: CETIRIZINE HYDROCHLORIDE\PSEUDOEPHEDRINE HYDROCHLORIDE
  156. PYRIDOXINE HYDROCHLORIDE [Suspect]
     Active Substance: PYRIDOXINE HYDROCHLORIDE
     Indication: Product used for unknown indication
  157. PSEUDOEPHEDRINE HYDROCHLORIDE [Suspect]
     Active Substance: PSEUDOEPHEDRINE HYDROCHLORIDE
     Indication: Product used for unknown indication
  158. PSEUDOEPHEDRINE HYDROCHLORIDE [Suspect]
     Active Substance: PSEUDOEPHEDRINE HYDROCHLORIDE
  159. PREDNICARBATE [Suspect]
     Active Substance: PREDNICARBATE
     Indication: Product used for unknown indication
  160. PAROXETINE [Suspect]
     Active Substance: PAROXETINE
     Indication: Product used for unknown indication
  161. PAROXETINE [Suspect]
     Active Substance: PAROXETINE
  162. FOLIC ACID [Suspect]
     Active Substance: FOLIC ACID
     Indication: Product used for unknown indication
  163. ERGOCALCIFEROL [Suspect]
     Active Substance: ERGOCALCIFEROL
     Indication: Product used for unknown indication
  164. ERGOCALCIFEROL [Suspect]
     Active Substance: ERGOCALCIFEROL
  165. ERGOCALCIFEROL [Suspect]
     Active Substance: ERGOCALCIFEROL
  166. ERGOCALCIFEROL [Suspect]
     Active Substance: ERGOCALCIFEROL
  167. NICOTINAMIDE [Suspect]
     Active Substance: NIACINAMIDE
     Indication: Product used for unknown indication
     Dosage: 421.0 DAYS
  168. MILNACIPRAN HYDROCHLORIDE [Suspect]
     Active Substance: MILNACIPRAN HYDROCHLORIDE
     Indication: Product used for unknown indication
  169. MILNACIPRAN HYDROCHLORIDE [Suspect]
     Active Substance: MILNACIPRAN HYDROCHLORIDE
  170. MAGNESIUM [Suspect]
     Active Substance: MAGNESIUM
     Indication: Product used for unknown indication

REACTIONS (15)
  - Abdominal pain upper [Unknown]
  - Gastrooesophageal reflux disease [Unknown]
  - Migraine [Unknown]
  - Product use in unapproved indication [Unknown]
  - Vomiting [Unknown]
  - Taste disorder [Unknown]
  - Memory impairment [Unknown]
  - Paraesthesia [Unknown]
  - Drug intolerance [Unknown]
  - Hypoaesthesia [Unknown]
  - Blepharospasm [Unknown]
  - Off label use [Unknown]
  - Epilepsy [Unknown]
  - Drug ineffective [Unknown]
  - Pain [Unknown]
